FAERS Safety Report 17293295 (Version 1)
Quarter: 2020Q1

REPORT INFORMATION
  Report Type: Spontaneous
  Country: GB (occurrence: GB)
  Receive Date: 20200121
  Receipt Date: 20200121
  Transmission Date: 20200409
  Serious: Yes (Life-Threatening, Hospitalization)
  Sender: FDA-Public Use
  Company Number: GB-TEVA-2020-GB-1169946

PATIENT
  Age: 49 Year
  Sex: Female
  Weight: 84.36 kg

DRUGS (8)
  1. AVAMYS [Concomitant]
     Active Substance: FLUTICASONE FUROATE
  2. CITALOPRAM [Concomitant]
     Active Substance: CITALOPRAM HYDROBROMIDE
  3. EPILIM [Concomitant]
     Active Substance: VALPROATE SODIUM
  4. SUMATRIPTAN. [Suspect]
     Active Substance: SUMATRIPTAN
     Indication: MIGRAINE
     Dosage: 50MG
     Route: 048
     Dates: start: 20190708, end: 20190901
  5. OXYPRO PROLONGED RELEASE [Concomitant]
  6. SHORTEC [Concomitant]
     Active Substance: OXYCODONE HYDROCHLORIDE
  7. LANSOPRAZOLE. [Concomitant]
     Active Substance: LANSOPRAZOLE
  8. FOSTAIR NEXTHALER [Concomitant]
     Active Substance: BECLOMETHASONE DIPROPIONATE\FORMOTEROL FUMARATE

REACTIONS (5)
  - Hyperhidrosis [Recovered/Resolved with Sequelae]
  - Pain [Unknown]
  - Somnolence [Recovered/Resolved with Sequelae]
  - Sepsis [Unknown]
  - Colitis ischaemic [Recovered/Resolved with Sequelae]

NARRATIVE: CASE EVENT DATE: 20190830
